FAERS Safety Report 13278066 (Version 1)
Quarter: 2017Q1

REPORT INFORMATION
  Report Type: Spontaneous
  Country: US (occurrence: US)
  Receive Date: 20170228
  Receipt Date: 20170228
  Transmission Date: 20170428
  Serious: No
  Sender: FDA-Public Use
  Company Number: US-PFIZER INC-2017083718

PATIENT
  Sex: Female

DRUGS (2)
  1. CHILDRENS ADVIL [Suspect]
     Active Substance: IBUPROFEN
     Indication: INFLUENZA
  2. CHILDRENS ADVIL [Suspect]
     Active Substance: IBUPROFEN
     Indication: PYREXIA

REACTIONS (6)
  - Throat irritation [Unknown]
  - Product taste abnormal [Unknown]
  - Dysgeusia [Unknown]
  - Hypersensitivity [Unknown]
  - Dyspnoea [Unknown]
  - Eye swelling [Unknown]
